FAERS Safety Report 6568583-3 (Version None)
Quarter: 2010Q1

REPORT INFORMATION
  Report Type: 
  Country: None (occurrence: None)
  Receive Date: 20100203
  Receipt Date: 20100122
  Transmission Date: 20100710
  Serious: Yes (Hospitalization)
  Sender: FDA-Public Use
  Company Number: FR-PFIZER INC-2010008996

PATIENT
  Age: 84 Year
  Sex: Male

DRUGS (6)
  1. LYRICA [Suspect]
     Indication: PAIN
     Dosage: 300 MG, 2X/DAY
     Route: 048
     Dates: start: 20090401
  2. TRAMADOL [Suspect]
     Indication: PAIN
     Dosage: 100 MG, 2X/DAY
     Route: 048
     Dates: start: 20090401
  3. LAROXYL [Suspect]
     Indication: PAIN
     Dosage: UNK
     Route: 048
     Dates: start: 20090401
  4. RIVOTRIL [Suspect]
     Indication: PAIN
     Dosage: UNK
     Route: 048
     Dates: start: 20090401
  5. APRANAX [Suspect]
     Indication: PAIN
     Dosage: UNK
     Route: 048
     Dates: start: 20090401
  6. LOVENOX [Concomitant]

REACTIONS (1)
  - OVERDOSE [None]
